FAERS Safety Report 7962547-0 (Version None)
Quarter: 2011Q4

REPORT INFORMATION
  Report Type: 
  Country: None (occurrence: None)
  Receive Date: 20111207
  Receipt Date: 20111201
  Transmission Date: 20120403
  Serious: Yes (Hospitalization)
  Sender: FDA-Public Use
  Company Number: FR-GLAXOSMITHKLINE-B0767245A

PATIENT
  Age: 81 Year
  Sex: Female

DRUGS (2)
  1. ARIXTRA [Suspect]
     Indication: THROMBOSIS PROPHYLAXIS
     Dosage: 2.5MG PER DAY
     Route: 058
     Dates: start: 20111101, end: 20111101
  2. ASPIRIN [Concomitant]
     Indication: CORONARY ARTERY BYPASS
     Route: 065

REACTIONS (2)
  - ANAEMIA [None]
  - INTRA-ABDOMINAL HAEMATOMA [None]
